FAERS Safety Report 9929165 (Version 2)
Quarter: 2014Q1

REPORT INFORMATION
  Report Type: Spontaneous
  Country: DK (occurrence: DK)
  Receive Date: 20140227
  Receipt Date: 20140318
  Transmission Date: 20141002
  Serious: Yes (Hospitalization)
  Sender: FDA-Public Use
  Company Number: DK-ELI_LILLY_AND_COMPANY-DK201402007173

PATIENT
  Age: 77 Year
  Sex: Female
  Weight: 65 kg

DRUGS (4)
  1. EFIENT [Suspect]
     Indication: STENT PLACEMENT
     Dosage: 60 MG, SINGLE
     Route: 048
     Dates: start: 20120705
  2. EFIENT [Suspect]
     Dosage: 10 MG, QD
     Route: 048
  3. ASPIRIN [Concomitant]
     Dosage: UNK, SINGLE
  4. ASPIRIN [Concomitant]
     Dosage: 100 MG, QD

REACTIONS (2)
  - Gastric ulcer [Recovered/Resolved]
  - Melaena [Recovered/Resolved]
